FAERS Safety Report 5447740-3 (Version None)
Quarter: 2007Q3

REPORT INFORMATION
  Report Type: 
  Country: None (occurrence: None)
  Receive Date: 20070910
  Receipt Date: 20070828
  Transmission Date: 20080115
  Serious: Yes (Hospitalization)
  Sender: FDA-Public Use
  Company Number: ES-ELI_LILLY_AND_COMPANY-ES200708006270

PATIENT
  Age: 72 Year
  Sex: Female

DRUGS (6)
  1. FORTEO [Suspect]
     Indication: OSTEOPOROSIS
     Dosage: 20 UG, UNKNOWN
     Route: 058
     Dates: start: 20070701, end: 20070701
  2. DIGOXIN [Concomitant]
     Dosage: UNK, UNKNOWN
     Route: 065
  3. CORTICOSTEROIDS [Concomitant]
     Dosage: UNK, UNKNOWN
     Route: 065
  4. MORPHINE [Concomitant]
     Dosage: UNK, UNKNOWN
     Route: 065
  5. CALCITONIN-SALMON [Concomitant]
     Dosage: UNK, UNKNOWN
     Route: 065
  6. FOSAMAX [Concomitant]
     Dosage: UNK, UNKNOWN
     Route: 065

REACTIONS (3)
  - ANGINA PECTORIS [None]
  - PANCREATITIS [None]
  - PNEUMONIA [None]
